FAERS Safety Report 24297665 (Version 1)
Quarter: 2024Q3

REPORT INFORMATION
  Report Type: Spontaneous
  Country: GB (occurrence: GB)
  Receive Date: 20240909
  Receipt Date: 20240909
  Transmission Date: 20241016
  Serious: Yes (Other)
  Sender: AUROBINDO
  Company Number: GB-MHRA-MED-202408301434208730-KHWLD

PATIENT
  Age: 87 Year
  Sex: Female

DRUGS (1)
  1. ALENDRONIC ACID [Suspect]
     Active Substance: ALENDRONIC ACID
     Indication: Osteoporosis
     Dosage: 70 MILLIGRAM EVERY WEEK
     Route: 065

REACTIONS (1)
  - Burn oral cavity [Recovering/Resolving]

NARRATIVE: CASE EVENT DATE: 20240830
